FAERS Safety Report 9742568 (Version 1)
Quarter: 2013Q4

REPORT INFORMATION
  Report Type: Spontaneous
  Country: US (occurrence: US)
  Receive Date: 20131210
  Receipt Date: 20131210
  Transmission Date: 20140711
  Serious: No
  Sender: FDA-Public Use
  Company Number: US-GILEAD-2009-0024280

PATIENT
  Sex: Male
  Weight: 86.18 kg

DRUGS (14)
  1. LETAIRIS [Suspect]
     Indication: PULMONARY ARTERIAL HYPERTENSION
     Route: 048
     Dates: start: 20080911
  2. WARFARIN [Concomitant]
  3. ALTACE [Concomitant]
  4. ATENOLOL [Concomitant]
  5. NORVASC [Concomitant]
  6. COMBIVENT [Concomitant]
  7. OXYGEN [Concomitant]
  8. CEFUROXIME AXETIL [Concomitant]
  9. AFRIN SALINE NASAL SPRAY [Concomitant]
  10. SIMVASTATIN [Concomitant]
  11. ACTOS [Concomitant]
  12. ASPIRIN [Concomitant]
  13. OMEPRAZOLE [Concomitant]
  14. VITAMIN B-12 [Concomitant]

REACTIONS (1)
  - Sinus congestion [Unknown]
